FAERS Safety Report 9562964 (Version 1)
Quarter: 2013Q3

REPORT INFORMATION
  Report Type: Spontaneous
  Country: US (occurrence: US)
  Receive Date: 20130927
  Receipt Date: 20130927
  Transmission Date: 20140515
  Serious: Yes (Other)
  Sender: FDA-Public Use
  Company Number: CHPA2013US014680

PATIENT
  Age: 89 Year
  Sex: Female

DRUGS (2)
  1. THERAPEUTIC MINERAL ICE [Suspect]
     Indication: ARTHRALGIA
     Dosage: UNK, 6 TIMES A DAY
     Route: 061
  2. THERAPEUTIC MINERAL ICE [Suspect]
     Route: 061

REACTIONS (4)
  - Neuropathy peripheral [Unknown]
  - Urinary tract infection [Unknown]
  - Incorrect dose administered [Unknown]
  - Incorrect drug administration duration [Unknown]
